FAERS Safety Report 24594904 (Version 1)
Quarter: 2024Q4

REPORT INFORMATION
  Report Type: Report from Study
  Country: IN (occurrence: IN)
  Receive Date: 20241108
  Receipt Date: 20241108
  Transmission Date: 20250115
  Serious: Yes (Other)
  Sender: GUERBET
  Company Number: IN-GUERBET / CHOKSI BROTHERS PRIVATE-IN-20240015

PATIENT

DRUGS (2)
  1. LIPIODOL [Suspect]
     Active Substance: ETHIODIZED OIL
     Indication: Therapeutic embolisation
     Dosage: LIPIODOL MIXED WITH N-BUTYL CYANOACRYLATE (N-BCA)
     Route: 013
  2. ENBUCRILATE [Suspect]
     Active Substance: ENBUCRILATE
     Indication: Therapeutic embolisation
     Dosage: LIPIODOL MIXED WITH N-BUTYL CYANOACRYLATE (N-BCA)
     Route: 013

REACTIONS (1)
  - Peripheral ischaemia [Unknown]
